FAERS Safety Report 7170009-6 (Version None)
Quarter: 2010Q4

REPORT INFORMATION
  Report Type: 
  Country: None (occurrence: None)
  Receive Date: 20101217
  Receipt Date: 20101215
  Transmission Date: 20110411
  Serious: Yes (Hospitalization)
  Sender: FDA-Public Use
  Company Number: IT-BAYER-2010-005140

PATIENT
  Sex: Female

DRUGS (1)
  1. ASPIRIN [Suspect]
     Indication: OROPHARYNGEAL PAIN
     Dosage: 500 MG, ONCE
     Route: 048
     Dates: start: 20101210, end: 20101210

REACTIONS (5)
  - GENERALISED ERYTHEMA [None]
  - HYPERSENSITIVITY [None]
  - MALAISE [None]
  - PRURITUS GENERALISED [None]
  - URTICARIA [None]
